FAERS Safety Report 19981500 (Version 1)
Quarter: 2021Q4

REPORT INFORMATION
  Report Type: Spontaneous
  Country: CA (occurrence: CA)
  Receive Date: 20211022
  Receipt Date: 20211022
  Transmission Date: 20220303
  Serious: Yes (Other)
  Sender: FDA-Public Use
  Company Number: CA-GPPHARMP-2021000093

PATIENT
  Sex: Male

DRUGS (5)
  1. LEUPROLIDE ACETATE [Suspect]
     Active Substance: LEUPROLIDE ACETATE
     Indication: Prostate cancer
     Route: 065
  2. ABIRATERONE ACETATE [Suspect]
     Active Substance: ABIRATERONE ACETATE
  3. CABAZITAXEL [Suspect]
     Active Substance: CABAZITAXEL
  4. PEGFILGRASTIM [Suspect]
     Active Substance: PEGFILGRASTIM
  5. PREDNISONE [Suspect]
     Active Substance: PREDNISONE

REACTIONS (2)
  - Deep vein thrombosis [Unknown]
  - Product use in unapproved indication [Unknown]
